FAERS Safety Report 23646296 (Version 1)
Quarter: 2024Q1

REPORT INFORMATION
  Report Type: Other
  Country: US (occurrence: None)
  Receive Date: 20240319
  Receipt Date: 20240319
  Transmission Date: 20240410
  Serious: Yes (Other)
  Sender: FDA-Public Use
  Company Number: US-ROCHE-3527914

PATIENT
  Age: 20 Year
  Sex: Female

DRUGS (1)
  1. EVRYSDI [Suspect]
     Active Substance: RISDIPLAM
     Indication: Spinal muscular atrophy
     Dosage: (6.6 ML)
     Route: 048
     Dates: start: 20220606, end: 20240222

REACTIONS (1)
  - Speech disorder [Recovered/Resolved]

NARRATIVE: CASE EVENT DATE: 20240221
